FAERS Safety Report 6879295-0 (Version None)
Quarter: 2010Q3

REPORT INFORMATION
  Report Type: 
  Country: None (occurrence: None)
  Receive Date: 20100728
  Receipt Date: 20100715
  Transmission Date: 20110219
  Serious: Yes (Other)
  Sender: FDA-Public Use
  Company Number: -SANOFI-AVENTIS-200912104EU

PATIENT
  Age: 73 Year
  Sex: Male

DRUGS (10)
  1. FUROSEMIDE [Suspect]
     Indication: PRODUCT USED FOR UNKNOWN INDICATION
     Dosage: DOSE AS USED: UNK
  2. ACETYLSALICYLIC ACID SRT [Suspect]
     Indication: PRODUCT USED FOR UNKNOWN INDICATION
     Dosage: DOSE AS USED: UNK
  3. AMIODARONE HCL [Suspect]
     Indication: PRODUCT USED FOR UNKNOWN INDICATION
     Dosage: DOSE AS USED: UNK
  4. ACE INHIBITOR NOS [Suspect]
     Indication: PRODUCT USED FOR UNKNOWN INDICATION
  5. ANTI-ASTHMATICS [Suspect]
     Indication: PRODUCT USED FOR UNKNOWN INDICATION
  6. FERROUS GLUCONATE [Suspect]
     Indication: PRODUCT USED FOR UNKNOWN INDICATION
  7. CHOLESTEROL- AND TRIGLYCERIDE REDUCERS [Suspect]
     Indication: PRODUCT USED FOR UNKNOWN INDICATION
  8. LEVOTHYROXINE SODIUM [Suspect]
     Indication: PRODUCT USED FOR UNKNOWN INDICATION
  9. WARFARIN [Suspect]
     Indication: PRODUCT USED FOR UNKNOWN INDICATION
  10. BETA BLOCKING AGENTS [Concomitant]
     Indication: PRODUCT USED FOR UNKNOWN INDICATION

REACTIONS (2)
  - COLITIS [None]
  - MESENTERIC OCCLUSION [None]
